FAERS Safety Report 8380089-8 (Version None)
Quarter: 2012Q2

REPORT INFORMATION
  Report Type: 
  Country: None (occurrence: None)
  Receive Date: 20120523
  Receipt Date: 20120511
  Transmission Date: 20120825
  Serious: Yes (Hospitalization)
  Sender: FDA-Public Use
  Company Number: JP-GLAXOSMITHKLINE-B0798868A

PATIENT
  Age: 48 Year
  Sex: Male
  Weight: 118 kg

DRUGS (16)
  1. METFFORMIN HYDROCHLORIDE [Concomitant]
     Route: 048
  2. MIGLITOL [Concomitant]
     Route: 048
  3. DEPAKENE [Concomitant]
     Route: 048
  4. TETRAMIDE [Concomitant]
     Route: 048
  5. ROZEREM [Concomitant]
     Route: 048
  6. ALLOPURINOL [Concomitant]
     Route: 048
  7. NOVORAPID [Concomitant]
     Route: 058
  8. LITHIUM CARBONATE [Concomitant]
     Route: 048
  9. DOXAZOSIN MESYLATE [Concomitant]
     Route: 048
  10. VALERIAN [Concomitant]
     Route: 048
  11. LAMICTAL [Suspect]
     Indication: DEPRESSION
     Dosage: 25MG PER DAY
     Route: 048
     Dates: start: 20120119, end: 20120226
  12. AMLODIPINE BESYLATE + TELMISARTAN [Concomitant]
     Route: 048
  13. CYMBALTA [Concomitant]
     Route: 048
  14. EPADEL [Concomitant]
     Route: 048
  15. LIPITOR [Concomitant]
     Route: 048
  16. LEVEMIR [Concomitant]
     Route: 058

REACTIONS (10)
  - PHARYNGEAL ERYTHEMA [None]
  - WHITE BLOOD CELL COUNT INCREASED [None]
  - DRUG ERUPTION [None]
  - PYREXIA [None]
  - C-REACTIVE PROTEIN INCREASED [None]
  - RASH [None]
  - DRUG RASH WITH EOSINOPHILIA AND SYSTEMIC SYMPTOMS [None]
  - HYPERTHERMIA [None]
  - RASH GENERALISED [None]
  - GENERALISED ERYTHEMA [None]
